FAERS Safety Report 10036032 (Version 2)
Quarter: 2014Q1

REPORT INFORMATION
  Report Type: Report from Study
  Country: DE (occurrence: DE)
  Receive Date: 20140325
  Receipt Date: 20140327
  Transmission Date: 20141002
  Serious: Yes (Death)
  Sender: FDA-Public Use
  Company Number: DE-ABBVIE-14K-062-1216372-00

PATIENT
  Age: 69 Year
  Sex: Male

DRUGS (7)
  1. LEUPRORELIN [Suspect]
     Indication: PROSTATE CANCER
     Dates: start: 20121025, end: 20130425
  2. DENOSUMAB [Concomitant]
     Indication: PRODUCT USED FOR UNKNOWN INDICATION
     Dates: end: 2013
  3. CALCIGEN D [Concomitant]
     Indication: PRODUCT USED FOR UNKNOWN INDICATION
  4. ORAL ANTIDIABETIC AND/OR INSULIN [Concomitant]
     Indication: PRODUCT USED FOR UNKNOWN INDICATION
  5. UNKNOWN LIPID LOWERING AGENT [Concomitant]
     Indication: PRODUCT USED FOR UNKNOWN INDICATION
  6. UNKNOWN BETA BLOCKING AGENTS [Concomitant]
     Indication: PRODUCT USED FOR UNKNOWN INDICATION
  7. ACETYLSALICYLIC ACID [Concomitant]
     Indication: PRODUCT USED FOR UNKNOWN INDICATION

REACTIONS (1)
  - Death [Fatal]
